FAERS Safety Report 9334707 (Version 1)
Quarter: 2013Q2

REPORT INFORMATION
  Report Type: Spontaneous
  Country: US (occurrence: US)
  Receive Date: 20130606
  Receipt Date: 20130606
  Transmission Date: 20140414
  Serious: No
  Sender: FDA-Public Use
  Company Number: US-AMGEN-USASP2013009321

PATIENT
  Age: 62 Year
  Sex: Female

DRUGS (1)
  1. PROLIA [Suspect]
     Indication: OSTEOPOROSIS POSTMENOPAUSAL
     Dosage: UNK
     Dates: start: 201212

REACTIONS (8)
  - Musculoskeletal stiffness [Unknown]
  - Inflammation [Unknown]
  - Nodule [Unknown]
  - Dermatitis acneiform [Unknown]
  - Limb discomfort [Unknown]
  - Local swelling [Unknown]
  - Pruritus [Unknown]
  - Erythema [Unknown]
